FAERS Safety Report 5250817-9 (Version None)
Quarter: 2007Q1

REPORT INFORMATION
  Report Type: 
  Country: None (occurrence: None)
  Receive Date: 20070228
  Receipt Date: 20060711
  Transmission Date: 20070707
  Serious: No
  Sender: FDA-Public Use
  Company Number: US-GLAXOSMITHKLINE-A0611808A

PATIENT
  Sex: Female

DRUGS (4)
  1. LAMICTAL [Suspect]
     Indication: DEPRESSION
     Dates: end: 20060101
  2. PLAVIX [Concomitant]
  3. LOPRESSOR [Concomitant]
  4. ZOCOR [Concomitant]

REACTIONS (1)
  - NAUSEA [None]
